FAERS Safety Report 5465609-5 (Version None)
Quarter: 2007Q3

REPORT INFORMATION
  Report Type: 
  Country: None (occurrence: None)
  Receive Date: 20070919
  Receipt Date: 20070919
  Transmission Date: 20080115
  Serious: Yes (Hospitalization)
  Sender: FDA-Public Use
  Company Number: None

PATIENT
  Sex: Female

DRUGS (1)
  1. THIAMINE HCL [Suspect]
     Indication: ALCOHOL WITHDRAWAL SYNDROME
     Dosage: 100MG ONCE IV BOLUS
     Route: 040
     Dates: start: 20070911, end: 20070911

REACTIONS (3)
  - CARDIAC ARREST [None]
  - DYSPNOEA [None]
  - UNRESPONSIVE TO STIMULI [None]
